FAERS Safety Report 10085477 (Version 3)
Quarter: 2014Q2

REPORT INFORMATION
  Report Type: Spontaneous
  Country: BR (occurrence: BR)
  Receive Date: 20140418
  Receipt Date: 20140508
  Transmission Date: 20141212
  Serious: Yes (Death)
  Sender: FDA-Public Use
  Company Number: BR-ROCHE-1263640

PATIENT
  Sex: Female
  Weight: 56 kg

DRUGS (5)
  1. AVASTIN [Suspect]
     Indication: COLON CANCER
     Route: 042
     Dates: start: 20130211
  2. LEUCOVORIN [Suspect]
     Indication: COLORECTAL CANCER
     Route: 065
     Dates: start: 2013
  3. FLUOROURACIL [Suspect]
     Indication: COLORECTAL CANCER
     Route: 042
     Dates: start: 20130211
  4. IRINOTECAN HYDROCHLORIDE [Suspect]
     Indication: COLORECTAL CANCER
     Route: 042
     Dates: start: 20130211
  5. CALCIUM CARBONATE [Concomitant]
     Indication: OSTEOPENIA
     Route: 048
     Dates: start: 2012

REACTIONS (4)
  - Disease progression [Fatal]
  - Vocal cord paralysis [Unknown]
  - Fingerprint loss [Not Recovered/Not Resolved]
  - Dysphonia [Recovered/Resolved]
